FAERS Safety Report 10422429 (Version 2)
Quarter: 2014Q3

REPORT INFORMATION
  Report Type: Spontaneous
  Country: US (occurrence: US)
  Receive Date: 20140901
  Receipt Date: 20140901
  Transmission Date: 20150326
  Serious: Yes (Other)
  Sender: FDA-Public Use
  Company Number: US-JNJFOC-20140801266

PATIENT
  Age: 39 Year
  Sex: Female
  Weight: 49.44 kg

DRUGS (6)
  1. REMICADE [Suspect]
     Active Substance: INFLIXIMAB
     Indication: COLITIS ULCERATIVE
     Dosage: FOR YEARS
     Route: 042
     Dates: start: 20120503
  2. MICROGESTIN [Concomitant]
     Active Substance: ETHINYL ESTRADIOL\NORETHINDRONE ACETATE
     Dosage: 1.5-30 MG
     Route: 065
  3. REMICADE [Suspect]
     Active Substance: INFLIXIMAB
     Indication: COLITIS ULCERATIVE
     Dosage: FOR YEARS
     Route: 042
     Dates: start: 20140731
  4. FIORICET [Concomitant]
     Active Substance: ACETAMINOPHEN\BUTALBITAL\CAFFEINE
     Dosage: 50-35-40-30 MG
     Route: 065
  5. ASPIRIN. [Concomitant]
     Active Substance: ASPIRIN
     Route: 065
  6. IMODIUM [Concomitant]
     Active Substance: LOPERAMIDE HYDROCHLORIDE
     Route: 065

REACTIONS (14)
  - Liver function test abnormal [Recovering/Resolving]
  - Insomnia [Unknown]
  - Chills [Unknown]
  - Stomatitis [Unknown]
  - Abdominal pain [Unknown]
  - Night sweats [Unknown]
  - Visual impairment [Unknown]
  - Asthenia [Unknown]
  - Dyspepsia [Unknown]
  - Diarrhoea [Unknown]
  - Mass [Recovered/Resolved]
  - Haematochezia [Unknown]
  - Hepatic lesion [Unknown]
  - Dizziness [Unknown]

NARRATIVE: CASE EVENT DATE: 20140731
